FAERS Safety Report 9180651 (Version 2)
Quarter: 2013Q2

REPORT INFORMATION
  Report Type: Spontaneous
  Country: KR (occurrence: KR)
  Receive Date: 20130322
  Receipt Date: 20130405
  Transmission Date: 20140414
  Serious: Yes (Hospitalization)
  Sender: FDA-Public Use
  Company Number: KR-ELI_LILLY_AND_COMPANY-KR201303004809

PATIENT
  Age: 58 Year
  Sex: Male

DRUGS (2)
  1. HUMALOG 25% LISPRO, 75% NPL [Suspect]
     Indication: TYPE 2 DIABETES MELLITUS
     Dosage: 52 IU, QD
     Route: 058
     Dates: start: 201301
  2. HUMALOG 25% LISPRO, 75% NPL [Suspect]
     Dosage: 42 IU, QD

REACTIONS (2)
  - Lumbar vertebral fracture [Recovering/Resolving]
  - Fall [Recovered/Resolved]
